FAERS Safety Report 4665438-6 (Version None)
Quarter: 2005Q2

REPORT INFORMATION
  Report Type: 
  Country: None (occurrence: None)
  Receive Date: 20050518
  Receipt Date: 20050518
  Transmission Date: 20051028
  Serious: Yes (Hospitalization)
  Sender: FDA-Public Use
  Company Number: None

PATIENT
  Sex: Male

DRUGS (13)
  1. WARFARIN 5 MG [Suspect]
     Indication: EJECTION FRACTION DECREASED
     Dosage: 5 MG MWF ORAL
     Route: 048
  2. WARFARIN SODIUM [Suspect]
     Indication: EJECTION FRACTION DECREASED
     Dosage: 7.5 MG ALL OTHER DAYS
  3. ISMO [Concomitant]
  4. SPIRONOLACTONE [Concomitant]
  5. CARVEDILOL [Concomitant]
  6. ASPIRIN [Concomitant]
  7. FUROSEMIDE [Concomitant]
  8. NITROGLYCERIN SL [Concomitant]
  9. DOCUSATE [Concomitant]
  10. HYDRALAZINE HCL [Concomitant]
  11. LISINOPRIL [Concomitant]
  12. SIMVASTATIN [Concomitant]
  13. DIGOXIN [Concomitant]

REACTIONS (1)
  - GASTROINTESTINAL HAEMORRHAGE [None]
